FAERS Safety Report 25761859 (Version 2)
Quarter: 2025Q4

REPORT INFORMATION
  Report Type: Spontaneous
  Country: US (occurrence: US)
  Receive Date: 20250904
  Receipt Date: 20251006
  Transmission Date: 20260117
  Serious: No
  Sender: MYLAN
  Company Number: US-MYLANLABS-2025M1072248

PATIENT
  Sex: Female

DRUGS (1)
  1. EPINEPHRINE [Suspect]
     Active Substance: EPINEPHRINE
     Indication: Anaphylactic reaction
     Dosage: 0.3 MILLIGRAM, PRN (INTO MUSCLE 1 TIME AS NEEDED)

REACTIONS (3)
  - Liquid product physical issue [Unknown]
  - Product colour issue [Unknown]
  - Product quality issue [Unknown]
